FAERS Safety Report 14413849 (Version 3)
Quarter: 2018Q4

REPORT INFORMATION
  Report Type: Report from Study
  Country: None (occurrence: US)
  Receive Date: 20180119
  Receipt Date: 20181026
  Transmission Date: 20190204
  Serious: Yes (Other)
  Sender: FDA-Public Use
  Company Number: US-ABBVIE-17K-163-2204515-00

PATIENT
  Age: 57 Year
  Sex: Male

DRUGS (2)
  1. HUMIRA [Suspect]
     Active Substance: ADALIMUMAB
     Route: 058
  2. HUMIRA [Suspect]
     Active Substance: ADALIMUMAB
     Indication: ANKYLOSING SPONDYLITIS
     Route: 058
     Dates: start: 2007, end: 2015

REACTIONS (10)
  - Colon cancer [Recovered/Resolved]
  - Pain [Not Recovered/Not Resolved]
  - Neoplasm [Unknown]
  - Musculoskeletal pain [Unknown]
  - General physical health deterioration [Recovering/Resolving]
  - Dyspnoea [Unknown]
  - Mobility decreased [Unknown]
  - Abnormal loss of weight [Unknown]
  - Neck mass [Not Recovered/Not Resolved]
  - Haematochezia [Recovered/Resolved]

NARRATIVE: CASE EVENT DATE: 2015
